FAERS Safety Report 21338267 (Version 1)
Quarter: 2022Q3

REPORT INFORMATION
  Report Type: Spontaneous
  Country: CN (occurrence: CN)
  Receive Date: 20220915
  Receipt Date: 20220915
  Transmission Date: 20221027
  Serious: Yes (Other)
  Sender: FDA-Public Use
  Company Number: CN-TAKEDA-2022TUS062951

PATIENT
  Age: 79 Year
  Sex: Male
  Weight: 49.5 kg

DRUGS (2)
  1. ALBUMIN HUMAN [Suspect]
     Active Substance: ALBUMIN HUMAN
     Indication: Hypoproteinaemia
     Dosage: 10 GRAM, QD
     Route: 041
     Dates: start: 20220822, end: 20220823
  2. ISEPAMICIN SULFATE [Suspect]
     Active Substance: ISEPAMICIN SULFATE
     Indication: Pancreatitis chronic
     Dosage: 0.4 GRAM, QD
     Route: 041
     Dates: start: 20220818, end: 20220823

REACTIONS (2)
  - Pruritus [Recovering/Resolving]
  - Rash [Recovering/Resolving]

NARRATIVE: CASE EVENT DATE: 20220823
